FAERS Safety Report 10673717 (Version 1)
Quarter: 2014Q4

REPORT INFORMATION
  Report Type: Spontaneous
  Country: US (occurrence: US)
  Receive Date: 20141224
  Receipt Date: 20141224
  Transmission Date: 20150529
  Serious: Yes (Hospitalization)
  Sender: FDA-Public Use
  Company Number: US-ASTRAZENECA-2014SE97268

PATIENT
  Sex: Female

DRUGS (1)
  1. ZOMIG [Suspect]
     Active Substance: ZOLMITRIPTAN
     Route: 045

REACTIONS (2)
  - Migraine [Unknown]
  - Drug dose omission [Unknown]
